FAERS Safety Report 25970927 (Version 1)
Quarter: 2025Q4

REPORT INFORMATION
  Report Type: Spontaneous
  Country: GB (occurrence: GB)
  Receive Date: 20251028
  Receipt Date: 20251028
  Transmission Date: 20260117
  Serious: Yes (Other)
  Sender: ARTHUR GROUP LLC
  Company Number: GB-ARTHUR-2025AGLIT00011

PATIENT
  Age: 36 Month

DRUGS (5)
  1. MELPHALAN [Suspect]
     Active Substance: MELPHALAN
     Indication: Congenital retinoblastoma
     Dosage: AT AGE OF 6 MONTHS (3,3,3,)
     Route: 013
  2. MELPHALAN [Suspect]
     Active Substance: MELPHALAN
     Indication: Congenital retinoblastoma
     Dosage: AT AGE OF 36 MONTHS (5,5)
     Route: 013
  3. MELPHALAN [Suspect]
     Active Substance: MELPHALAN
     Indication: Product used for unknown indication
  4. TOPOTECAN [Suspect]
     Active Substance: TOPOTECAN HYDROCHLORIDE
     Indication: Congenital retinoblastoma
     Dosage: AT 6 MONTHS (0.3,0.3,0.75)
     Route: 013
  5. TOPOTECAN [Suspect]
     Active Substance: TOPOTECAN HYDROCHLORIDE
     Dosage: AT 36 MONTHS (1,1)
     Route: 013

REACTIONS (3)
  - IIIrd nerve paralysis [Recovered/Resolved]
  - Product use in unapproved indication [Unknown]
  - Product use issue [Unknown]
